FAERS Safety Report 4969126-8 (Version None)
Quarter: 2006Q2

REPORT INFORMATION
  Report Type: 
  Country: None (occurrence: None)
  Receive Date: 20060411
  Receipt Date: 20050405
  Transmission Date: 20061013
  Serious: No
  Sender: FDA-Public Use
  Company Number: US-BRISTOL-MYERS SQUIBB COMPANY-12922068

PATIENT
  Sex: Female
  Weight: 60 kg

DRUGS (2)
  1. PARAPLATIN [Suspect]
     Indication: BREAST CANCER
     Route: 042
  2. DECADRON [Concomitant]
     Indication: PREMEDICATION

REACTIONS (1)
  - URTICARIA [None]
